FAERS Safety Report 25531490 (Version 5)
Quarter: 2025Q3

REPORT INFORMATION
  Report Type: Report from Study
  Country: US (occurrence: US)
  Receive Date: 20250708
  Receipt Date: 20250828
  Transmission Date: 20251021
  Serious: Yes (Other)
  Sender: MALLINCKRODT
  Company Number: US-MALLINCKRODT-MNK202504026

PATIENT
  Age: 59 Year
  Sex: Female

DRUGS (8)
  1. CORTICOTROPIN [Suspect]
     Active Substance: CORTICOTROPIN
     Indication: Ankylosing spondylitis
     Route: 058
  2. CORTICOTROPIN [Suspect]
     Active Substance: CORTICOTROPIN
     Route: 058
     Dates: start: 20250706
  3. RAMIPRIL [Concomitant]
     Active Substance: RAMIPRIL
  4. CARVEDILOL [Concomitant]
     Active Substance: CARVEDILOL
  5. HYDROCHLOROTHIAZIDE [Concomitant]
     Active Substance: HYDROCHLOROTHIAZIDE
  6. SIMPONI ARIA [Concomitant]
     Active Substance: GOLIMUMAB
  7. LEFLUNOMIDE [Concomitant]
     Active Substance: LEFLUNOMIDE
  8. DOXYCYCLINE [Concomitant]
     Active Substance: DOXYCYCLINE
     Dates: start: 2025

REACTIONS (3)
  - Knee arthroplasty [Unknown]
  - Insomnia [Recovered/Resolved]
  - Stitch abscess [Recovered/Resolved]

NARRATIVE: CASE EVENT DATE: 20250101
